FAERS Safety Report 6415866-3 (Version None)
Quarter: 2009Q4

REPORT INFORMATION
  Report Type: 
  Country: None (occurrence: None)
  Receive Date: 20091022
  Receipt Date: 20091013
  Transmission Date: 20100525
  Serious: Yes (Other)
  Sender: FDA-Public Use
  Company Number: 2009EU003902

PATIENT
  Age: 57 Year
  Sex: Male
  Weight: 70 kg

DRUGS (2)
  1. TACROLIMUS [Suspect]
     Indication: LIVER TRANSPLANT
     Dates: start: 20040301
  2. PREDNISONE TAB [Concomitant]

REACTIONS (10)
  - CHOLESTASIS [None]
  - CONSTIPATION [None]
  - DISEASE RECURRENCE [None]
  - HYPERPLASIA [None]
  - HYPERTENSION [None]
  - NECROSIS [None]
  - NEPHROPATHY TOXIC [None]
  - SPLENOMEGALY [None]
  - THROMBOTIC MICROANGIOPATHY [None]
  - VASCULAR INJURY [None]
